FAERS Safety Report 21906291 (Version 9)
Quarter: 2023Q4

REPORT INFORMATION
  Report Type: Report from Study
  Country: CA (occurrence: CA)
  Receive Date: 20230125
  Receipt Date: 20231227
  Transmission Date: 20240109
  Serious: Yes (Other)
  Sender: FDA-Public Use
  Company Number: CA-JNJFOC-20221107410

PATIENT
  Age: 32 Year
  Sex: Female
  Weight: 77 kg

DRUGS (2)
  1. REMICADE [Suspect]
     Active Substance: INFLIXIMAB
     Indication: Crohn^s disease
     Dosage: EXPIRY DATE: MAR-2025 AND 31-AUG-2025. THERAPY START DATE ALSO REPORTED AS 13/OCT/2017. THERAPY STAR
     Route: 041
     Dates: start: 20161014
  2. REMICADE [Suspect]
     Active Substance: INFLIXIMAB
     Dosage: EXPIRY DATE:05-SEP-2023, MAR-2026
     Route: 041

REACTIONS (11)
  - Tonsillitis [Recovering/Resolving]
  - Folliculitis [Recovered/Resolved]
  - Lupus-like syndrome [Not Recovered/Not Resolved]
  - Rash [Not Recovered/Not Resolved]
  - Respiratory tract congestion [Unknown]
  - Influenza like illness [Unknown]
  - Pain [Unknown]
  - Headache [Unknown]
  - Pyrexia [Unknown]
  - Fatigue [Not Recovered/Not Resolved]
  - Post procedural infection [Recovered/Resolved]

NARRATIVE: CASE EVENT DATE: 20220101
